FAERS Safety Report 14412467 (Version 1)
Quarter: 2018Q1

REPORT INFORMATION
  Report Type: Spontaneous
  Country: US (occurrence: US)
  Receive Date: 20180118
  Receipt Date: 20180118
  Transmission Date: 20180509
  Serious: Yes (Life-Threatening)
  Sender: FDA-Public Use
  Company Number: None

PATIENT
  Age: 63 Year
  Sex: Female
  Weight: 58.95 kg

DRUGS (2)
  1. ROLAPITANT [Suspect]
     Active Substance: ROLAPITANT
     Indication: ANTIEMETIC SUPPORTIVE CARE
     Dosage: ?          OTHER FREQUENCY:EVERY 3 WEEKS;?
     Route: 041
     Dates: start: 20171226, end: 20171226
  2. VARUBI [Concomitant]
     Active Substance: ROLAPITANT

REACTIONS (4)
  - Dyspnoea [None]
  - Oxygen saturation decreased [None]
  - Dizziness [None]
  - Blood pressure decreased [None]

NARRATIVE: CASE EVENT DATE: 20171226
